FAERS Safety Report 6809496-9 (Version None)
Quarter: 2010Q2

REPORT INFORMATION
  Report Type: 
  Country: None (occurrence: None)
  Receive Date: 20100625
  Receipt Date: 20100611
  Transmission Date: 20101027
  Serious: Yes (Hospitalization)
  Sender: FDA-Public Use
  Company Number: 7007945

PATIENT
  Sex: Female

DRUGS (2)
  1. REBIF [Suspect]
     Indication: RELAPSING-REMITTING MULTIPLE SCLEROSIS
     Dosage: 44 MCG, 3 I 1 WK, SUBCUTANEOUS
     Route: 058
     Dates: start: 20040515
  2. CARBAMAZEPINE [Concomitant]

REACTIONS (3)
  - EATING DISORDER [None]
  - INJECTION SITE ERYTHEMA [None]
  - INJECTION SITE NODULE [None]
